FAERS Safety Report 4812563-2 (Version None)
Quarter: 2005Q4

REPORT INFORMATION
  Report Type: 
  Country: None (occurrence: None)
  Receive Date: 20051028
  Receipt Date: 20041101
  Transmission Date: 20060501
  Serious: No
  Sender: FDA-Public Use
  Company Number: US-GLAXOSMITHKLINE-A0532008A

PATIENT
  Age: 58 Year
  Sex: Female

DRUGS (11)
  1. ADVAIR DISKUS 100/50 [Suspect]
     Indication: ASTHMA
     Dosage: 1PUFF TWICE PER DAY
     Route: 055
     Dates: start: 20040501
  2. XANAX [Concomitant]
  3. EFFEXOR [Concomitant]
  4. ATIVAN [Concomitant]
  5. PREVACID [Concomitant]
  6. UNKNOWN MEDICATION [Concomitant]
  7. ELASTASE [Concomitant]
  8. MULTI-VITAMIN [Concomitant]
  9. TUMS [Concomitant]
  10. VITAMIN B COMPLEX CAP [Concomitant]
  11. SYNTHROID [Concomitant]

REACTIONS (2)
  - CHEST PAIN [None]
  - DYSPNOEA [None]
